FAERS Safety Report 4579003-2 (Version None)
Quarter: 2005Q1

REPORT INFORMATION
  Report Type: 
  Country: None (occurrence: None)
  Receive Date: 20050119
  Receipt Date: 20040608
  Transmission Date: 20050727
  Serious: Yes (Hospitalization)
  Sender: FDA-Public Use
  Company Number: A03200401826

PATIENT
  Age: 79 Year
  Sex: Male

DRUGS (10)
  1. PLAVIX [Suspect]
     Indication: CORONARY ANGIOPLASTY
     Dosage: 75 MG QD - ORAL
     Route: 048
     Dates: start: 20031014
  2. PLAVIX [Suspect]
     Indication: STENT PLACEMENT
     Dosage: 75 MG QD - ORAL
     Route: 048
     Dates: start: 20031014
  3. ANGIOMAX [Suspect]
     Indication: CORONARY ANGIOPLASTY
     Dosage: 72 MG LOADING DOSE FOLLOWED BY 42.2 MG INFUSION - INITRAVENOUS NOS
     Route: 042
     Dates: start: 20031014, end: 20031014
  4. ANGIOMAX [Suspect]
     Indication: STENT PLACEMENT
     Dosage: 72 MG LOADING DOSE FOLLOWED BY 42.2 MG INFUSION - INITRAVENOUS NOS
     Route: 042
     Dates: start: 20031014, end: 20031014
  5. SIMVASTATIN [Concomitant]
  6. ACARBOSE [Concomitant]
  7. GLIBENCLAMIDE [Concomitant]
  8. ALLOPURINOL [Concomitant]
  9. CARVEDILOL [Concomitant]
  10. ACETYLSALICYLIC ACID SRT [Concomitant]

REACTIONS (2)
  - GASTRITIS EROSIVE [None]
  - MELAENA [None]
